FAERS Safety Report 8586039-3 (Version None)
Quarter: 2012Q3

REPORT INFORMATION
  Report Type: 
  Country: None (occurrence: None)
  Receive Date: 20120810
  Receipt Date: 20120806
  Transmission Date: 20120928
  Serious: Yes (Hospitalization, Other)
  Sender: FDA-Public Use
  Company Number: US-PFIZER INC-2012155170

PATIENT
  Age: 89 Year
  Sex: Female
  Weight: 66 kg

DRUGS (12)
  1. LISINOPRIL [Concomitant]
     Indication: BLOOD PRESSURE ABNORMAL
     Dosage: UNK
  2. ZOCOR [Concomitant]
     Dosage: 20 MG, UNK
  3. SYNTHROID [Concomitant]
     Dosage: UNK, DAILY
  4. LEVOXYL [Suspect]
     Dosage: 75 UG, DAILY
  5. LEVOXYL [Suspect]
     Dosage: 200 UG, 1X/DAY
     Dates: start: 20120701
  6. COUMADIN [Concomitant]
     Indication: VISUAL IMPAIRMENT
     Dosage: 250 MG DAILY ON SATURDAYS AND SUNDAYS AND 120 MG DAILY ON THE REST OF DAYS
  7. LEVOXYL [Suspect]
     Indication: THYROID DISORDER
     Dosage: 50 UG, DAILY
  8. LEVOXYL [Suspect]
     Dosage: 150 UG, DAILY
  9. TRICOR [Concomitant]
     Dosage: 145 MG, UNK
  10. LEVOXYL [Suspect]
     Dosage: 100 UG, DAILY
  11. TOVIAZ [Suspect]
     Dosage: UNK
  12. ATENOLOL [Concomitant]
     Indication: BLOOD PRESSURE ABNORMAL
     Dosage: UNK

REACTIONS (7)
  - CARPAL TUNNEL SYNDROME [None]
  - POLLAKIURIA [None]
  - OCULAR VASCULAR DISORDER [None]
  - CATARACT [None]
  - PAIN IN EXTREMITY [None]
  - INSOMNIA [None]
  - VISUAL IMPAIRMENT [None]
